FAERS Safety Report 11059104 (Version 1)
Quarter: 2015Q2

REPORT INFORMATION
  Report Type: Spontaneous
  Country: US (occurrence: None)
  Receive Date: 20150420
  Receipt Date: 20150420
  Transmission Date: 20150821
  Serious: No
  Sender: FDA-Public Use
  Company Number: AEGR001170

PATIENT
  Age: 68 Year
  Sex: Female
  Weight: 52.2 kg

DRUGS (10)
  1. BYSTOLIC [Concomitant]
     Active Substance: NEBIVOLOL HYDROCHLORIDE
  2. MAGNESIUM GLUCONATE [Concomitant]
     Active Substance: MAGNESIUM GLUCONATE
  3. ALPRAZOLAM. [Concomitant]
     Active Substance: ALPRAZOLAM
  4. JUXTAPID [Suspect]
     Active Substance: LOMITAPIDE MESYLATE
     Indication: TYPE IIA HYPERLIPIDAEMIA
     Route: 048
  5. OMEGA 3 6 9 (OMEGA 9 FATTY ACIDS, OMEGA-3 FATTY ACIDS, OMEGA-6 FATTY ACIDS) [Concomitant]
  6. VITAMIN E (TOCOPHERYL ACETATE) [Concomitant]
  7. ASPIRIN (ACETYLSALICYLIC ACID) [Concomitant]
     Active Substance: ASPIRIN
  8. FISH OIL (COD-LIVER OIL) [Concomitant]
  9. CRESTOR [Concomitant]
     Active Substance: ROSUVASTATIN CALCIUM
  10. VITAMIN D (COLECALCIFEROL) [Concomitant]

REACTIONS (1)
  - Burning feet syndrome [None]
